FAERS Safety Report 9056030 (Version 12)
Quarter: 2014Q1

REPORT INFORMATION
  Report Type: Report from Study
  Country: CA (occurrence: CA)
  Receive Date: 20130205
  Receipt Date: 20140127
  Transmission Date: 20141002
  Serious: Yes (Other)
  Sender: FDA-Public Use
  Company Number: PHHY2013CA007596

PATIENT
  Age: 74 Year
  Sex: Female

DRUGS (9)
  1. SANDOSTATIN LAR [Suspect]
     Indication: NEUROENDOCRINE TUMOUR
     Dosage: 30 MG, QMO
     Route: 030
     Dates: start: 20121121
  2. SANDOSTATIN LAR [Suspect]
     Dosage: 30 MG, UNK
     Route: 030
     Dates: start: 20130719
  3. SANDOSTATIN LAR [Suspect]
     Dosage: 20 MG, UNK
     Route: 030
     Dates: start: 20130723
  4. SANDOSTATIN LAR [Suspect]
     Dosage: 50 MG, QMO
     Route: 030
  5. SANDOSTATIN LAR [Suspect]
     Dosage: 50 MG, QMO
     Route: 030
  6. SANDOSTATIN LAR [Suspect]
     Dosage: 60 MG, QMO
     Route: 030
     Dates: end: 20131218
  7. THYROXINE [Concomitant]
     Dosage: UNK UKN, UNK
  8. TECTA [Concomitant]
     Dosage: UNK UKN, UNK
  9. TYLENOL [Concomitant]
     Dosage: UNK UKN, OCCASIONAL

REACTIONS (33)
  - Hepatic neoplasm [Unknown]
  - Second primary malignancy [Unknown]
  - General physical health deterioration [Unknown]
  - Diverticulitis [Unknown]
  - Blood pressure increased [Unknown]
  - Injection site pruritus [Unknown]
  - Influenza [Unknown]
  - Arthralgia [Recovering/Resolving]
  - Gait disturbance [Unknown]
  - Arthritis [Unknown]
  - Skin discolouration [Unknown]
  - Musculoskeletal stiffness [Unknown]
  - Rhinorrhoea [Unknown]
  - Cough [Unknown]
  - Rales [Unknown]
  - Pain [Recovered/Resolved]
  - Red blood cell count decreased [Unknown]
  - Gastrointestinal infection [Unknown]
  - Weight decreased [Recovered/Resolved]
  - Flushing [Unknown]
  - Hypothermia [Unknown]
  - Liver disorder [Unknown]
  - Musculoskeletal discomfort [Unknown]
  - Dizziness [Unknown]
  - Asthenia [Unknown]
  - Malaise [Unknown]
  - Nausea [Unknown]
  - Headache [Unknown]
  - Decreased appetite [Unknown]
  - Faeces discoloured [Unknown]
  - Abdominal pain [Unknown]
  - Fatigue [Unknown]
  - Diarrhoea [Unknown]
